FAERS Safety Report 24278765 (Version 1)
Quarter: 2024Q3

REPORT INFORMATION
  Report Type: Spontaneous
  Country: FR (occurrence: FR)
  Receive Date: 20240903
  Receipt Date: 20240903
  Transmission Date: 20241016
  Serious: Yes (Death, Other)
  Sender: MYLAN
  Company Number: FR-AstraZeneca-2024A133272

PATIENT
  Age: 52 Year
  Sex: Female

DRUGS (28)
  1. GEFITINIB [Suspect]
     Active Substance: GEFITINIB
     Indication: Lung adenocarcinoma
     Dosage: UNK, FIRST-LINE TREATMENT
     Route: 048
  2. GEFITINIB [Suspect]
     Active Substance: GEFITINIB
     Indication: Metastatic bronchial carcinoma
  3. GEFITINIB [Suspect]
     Active Substance: GEFITINIB
     Indication: Adenocarcinoma
  4. GEMCITABINE [Suspect]
     Active Substance: GEMCITABINE
     Indication: Adenocarcinoma
     Dosage: UNK
     Route: 065
     Dates: end: 202105
  5. GEMCITABINE [Suspect]
     Active Substance: GEMCITABINE
     Indication: Metastatic bronchial carcinoma
  6. CARBOPLATIN [Suspect]
     Active Substance: CARBOPLATIN
     Indication: Metastatic bronchial carcinoma
     Dosage: UNK (RECEIVED CARBOPLATIN 6-COURSES)
     Route: 065
     Dates: end: 202001
  7. CARBOPLATIN [Suspect]
     Active Substance: CARBOPLATIN
     Indication: Adenocarcinoma
     Dosage: UNK
     Route: 065
     Dates: end: 202105
  8. PEMETREXED [Suspect]
     Active Substance: PEMETREXED
     Indication: Metastatic bronchial carcinoma
     Dosage: UNK (RECEIVED PEMETREXED 6-COURSES)
     Route: 065
     Dates: end: 202001
  9. PEMETREXED [Suspect]
     Active Substance: PEMETREXED
     Indication: Adenocarcinoma
  10. ALECTINIB [Suspect]
     Active Substance: ALECTINIB
     Indication: Adenocarcinoma
     Dosage: UNK
     Route: 065
  11. ALECTINIB [Suspect]
     Active Substance: ALECTINIB
     Indication: Metastatic bronchial carcinoma
  12. OSIMERTINIB [Suspect]
     Active Substance: OSIMERTINIB
     Indication: Lung adenocarcinoma
     Dosage: UNK
     Route: 048
  13. OSIMERTINIB [Suspect]
     Active Substance: OSIMERTINIB
     Indication: Metastatic bronchial carcinoma
     Dosage: UNK
     Route: 065
     Dates: end: 202105
  14. OSIMERTINIB [Suspect]
     Active Substance: OSIMERTINIB
     Indication: Adenocarcinoma
  15. DABRAFENIB [Suspect]
     Active Substance: DABRAFENIB
     Indication: Adenocarcinoma
     Dosage: UNK
     Route: 065
  16. DABRAFENIB [Suspect]
     Active Substance: DABRAFENIB
     Indication: Metastatic bronchial carcinoma
  17. TRAMETINIB [Suspect]
     Active Substance: TRAMETINIB
     Indication: Adenocarcinoma
     Dosage: UNK
     Route: 065
  18. BEVACIZUMAB [Suspect]
     Active Substance: BEVACIZUMAB
     Indication: Adenocarcinoma
     Dosage: UNK
     Route: 065
  19. BEVACIZUMAB [Suspect]
     Active Substance: BEVACIZUMAB
     Indication: Metastatic bronchial carcinoma
  20. PACLITAXEL [Suspect]
     Active Substance: PACLITAXEL
     Indication: Adenocarcinoma
     Dosage: UNK
     Route: 065
  21. PACLITAXEL [Suspect]
     Active Substance: PACLITAXEL
     Indication: Metastatic bronchial carcinoma
  22. DABRAFENIB [Concomitant]
     Active Substance: DABRAFENIB
     Dosage: UNK
     Route: 065
  23. PEMETREXED [Concomitant]
     Active Substance: PEMETREXED
     Dosage: UNK
     Route: 065
  24. TRAMETINIB [Concomitant]
     Active Substance: TRAMETINIB
     Dosage: UNK
     Route: 065
  25. ALECTINIB [Concomitant]
     Active Substance: ALECTINIB
     Dosage: UNK
     Route: 065
  26. BEVACIZUMAB [Concomitant]
     Active Substance: BEVACIZUMAB
     Dosage: UNK
     Route: 065
  27. PACLITAXEL [Concomitant]
     Active Substance: PACLITAXEL
     Dosage: UNK
     Route: 065
  28. CARBOPLATIN [Concomitant]
     Active Substance: CARBOPLATIN
     Dosage: UNK
     Route: 065

REACTIONS (5)
  - General physical health deterioration [Fatal]
  - Drug ineffective [Fatal]
  - Toxicity to various agents [Unknown]
  - Malignant neoplasm progression [Unknown]
  - Off label use [Unknown]
